FAERS Safety Report 9517617 (Version 3)
Quarter: 2013Q4

REPORT INFORMATION
  Report Type: Spontaneous
  Country: US (occurrence: US)
  Receive Date: 20130912
  Receipt Date: 20131119
  Transmission Date: 20140711
  Serious: No
  Sender: FDA-Public Use
  Company Number: US-009507513-1309USA002384

PATIENT
  Age: 33 Year
  Sex: Male
  Weight: 87.98 kg

DRUGS (9)
  1. VICTRELIS [Suspect]
     Indication: HEPATITIS C
     Dosage: 4 CAPSULES BY MOUTH THREE TIMES A DAY (EVERY 7-9 HOURS) WITH FOOD THEREAFTER
     Route: 048
     Dates: start: 201309
  2. REBETOL [Suspect]
     Indication: HEPATITIS C
     Dosage: 3 DF, QAM
     Route: 048
     Dates: start: 201308
  3. REBETOL [Suspect]
     Dosage: 2 DF, QPM
     Route: 048
     Dates: start: 201308
  4. PEGASYS [Suspect]
     Dosage: 180 MICROGRAM, QW
     Route: 058
     Dates: start: 201308
  5. HYDROXYZINE PAMOATE [Concomitant]
     Dosage: UNK
     Route: 048
  6. FLUOXETINE [Concomitant]
     Dosage: UNK
     Route: 048
  7. TRAZODONE HYDROCHLORIDE [Concomitant]
     Route: 048
  8. VITAMINS (UNSPECIFIED) [Concomitant]
     Dosage: UNK
     Route: 048
  9. EXCEDRIN (ACETAMINOPHEN (+) CAFFEINE) [Concomitant]
     Indication: MIGRAINE
     Dosage: UNK
     Route: 048

REACTIONS (13)
  - Migraine [Unknown]
  - Irritability [Unknown]
  - Fatigue [Unknown]
  - Rash [Unknown]
  - Pain [Unknown]
  - Headache [Unknown]
  - Amnesia [Unknown]
  - Dysgeusia [Unknown]
  - Abdominal pain [Unknown]
  - Influenza like illness [Unknown]
  - Dysgeusia [Unknown]
  - Anaemia [Unknown]
  - Rash [Unknown]
